FAERS Safety Report 10156498 (Version 1)
Quarter: 2014Q2

REPORT INFORMATION
  Report Type: Spontaneous
  Country: US (occurrence: None)
  Receive Date: 20140505
  Receipt Date: 20140505
  Transmission Date: 20141212
  Serious: Yes (Other)
  Sender: FDA-Public Use
  Company Number: 2014-US-004831

PATIENT
  Age: 42 Year
  Sex: Male
  Weight: 104.3 kg

DRUGS (7)
  1. XYREM (SODIUM OXYBATE) ORAL SOLUTION, 500 MG/ML [Suspect]
     Indication: NARCOLEPSY
     Route: 048
     Dates: start: 201003, end: 2010
  2. XYREM (SODIUM OXYBATE) ORAL SOLUTION, 500 MG/ML [Suspect]
     Indication: CATAPLEXY
     Route: 048
     Dates: start: 201003, end: 2010
  3. PROVIGIL (MODAFINIL) [Suspect]
     Indication: PRODUCT USED FOR UNKNOWN INDICATION
  4. NEXIUM (ESOMEPRAZOLE MAGNESIUM) [Concomitant]
  5. CARAFATE (SUCRALFATE) TABLET, 1G [Concomitant]
  6. NORTRIPTYLINE (NORTRIPTYLINE) [Concomitant]
  7. VYVANSE (LISDEXAMFETAMINE MESILATE) [Suspect]
     Indication: PRODUCT USED FOR UNKNOWN INDICATION
     Dates: end: 20140326

REACTIONS (14)
  - Pharyngeal oedema [None]
  - Initial insomnia [None]
  - Peripheral coldness [None]
  - Hypoaesthesia [None]
  - Hypoaesthesia [None]
  - Dysstasia [None]
  - Vision blurred [None]
  - Blindness [None]
  - Paraesthesia [None]
  - Dizziness [None]
  - Tremor [None]
  - Chest pain [None]
  - Cataplexy [None]
  - Drug ineffective [None]
